FAERS Safety Report 23626674 (Version 3)
Quarter: 2024Q2

REPORT INFORMATION
  Report Type: Spontaneous
  Country: GB (occurrence: GB)
  Receive Date: 20240313
  Receipt Date: 20240411
  Transmission Date: 20240716
  Serious: Yes (Other)
  Sender: FDA-Public Use
  Company Number: GB-RECORDATI-2024000506

PATIENT
  Sex: Male

DRUGS (2)
  1. CARIPRAZINE [Suspect]
     Active Substance: CARIPRAZINE
     Indication: Schizophrenia
     Route: 048
  2. VALPROATE SODIUM [Concomitant]
     Active Substance: VALPROATE SODIUM
     Indication: Schizophrenia
     Route: 065

REACTIONS (1)
  - Schizophrenia [Recovering/Resolving]
